FAERS Safety Report 13517182 (Version 1)
Quarter: 2017Q2

REPORT INFORMATION
  Report Type: Spontaneous
  Country: US (occurrence: US)
  Receive Date: 20170505
  Receipt Date: 20170505
  Transmission Date: 20170830
  Serious: Yes (Hospitalization)
  Sender: FDA-Public Use
  Company Number: None

PATIENT
  Age: 84 Year
  Sex: Female
  Weight: 54.9 kg

DRUGS (12)
  1. TOPROL XL [Concomitant]
     Active Substance: METOPROLOL SUCCINATE
  2. PLAVIX [Suspect]
     Active Substance: CLOPIDOGREL BISULFATE
     Indication: ANTIPLATELET THERAPY
     Dosage: 75 MG DI PO
     Route: 048
  3. DRISDOL [Concomitant]
     Active Substance: ERGOCALCIFEROL
  4. MVI [Concomitant]
     Active Substance: VITAMINS
  5. ALTACE [Concomitant]
     Active Substance: RAMIPRIL
  6. SYNTHROID [Concomitant]
     Active Substance: LEVOTHYROXINE SODIUM
  7. FAMOTIDINE. [Concomitant]
     Active Substance: FAMOTIDINE
  8. NORVASC [Concomitant]
     Active Substance: AMLODIPINE BESYLATE
  9. MULTAQ [Concomitant]
     Active Substance: DRONEDARONE
  10. ELIQUIS [Suspect]
     Active Substance: APIXABAN
     Indication: ATRIAL FIBRILLATION
     Route: 048
  11. DEMADEX [Concomitant]
     Active Substance: TORSEMIDE
  12. ZOFRAN [Concomitant]
     Active Substance: ONDANSETRON HYDROCHLORIDE

REACTIONS (3)
  - Gastrointestinal haemorrhage [None]
  - Gastrointestinal arteriovenous malformation [None]
  - Therapy cessation [None]

NARRATIVE: CASE EVENT DATE: 20161228
